FAERS Safety Report 9815483 (Version 2)
Quarter: 2014Q1

REPORT INFORMATION
  Report Type: Spontaneous
  Country: US (occurrence: US)
  Receive Date: 20140114
  Receipt Date: 20140129
  Transmission Date: 20141002
  Serious: No
  Sender: FDA-Public Use
  Company Number: US-PFIZER INC-2014009499

PATIENT
  Age: 69 Year
  Sex: Female

DRUGS (2)
  1. INLYTA [Suspect]
     Indication: RENAL CANCER
     Dosage: 1 MG, UNK
     Dates: start: 20131221
  2. INLYTA [Suspect]
     Dosage: 3 MG, 1X/DAY
     Dates: start: 20131219

REACTIONS (2)
  - Hypotension [Unknown]
  - Hypertension [Unknown]
